FAERS Safety Report 5795770-4 (Version None)
Quarter: 2008Q3

REPORT INFORMATION
  Report Type: 
  Country: None (occurrence: None)
  Receive Date: 20080701
  Receipt Date: 20080529
  Transmission Date: 20090109
  Serious: No
  Sender: FDA-Public Use
  Company Number: US-BAYER-200824669NA

PATIENT
  Age: 48 Year
  Sex: Male

DRUGS (1)
  1. MIRENA [Suspect]
     Route: 015
     Dates: start: 20070301

REACTIONS (2)
  - GENITAL PAIN [None]
  - PENIS DISORDER [None]
